FAERS Safety Report 5406089-5 (Version None)
Quarter: 2007Q3

REPORT INFORMATION
  Report Type: 
  Country: None (occurrence: None)
  Receive Date: 20070802
  Receipt Date: 20070802
  Transmission Date: 20080115
  Serious: Yes (Life-Threatening)
  Sender: FDA-Public Use
  Company Number: None

PATIENT
  Age: 18 Year
  Sex: Male
  Weight: 81.6475 kg

DRUGS (2)
  1. BUDEPRION XL TM [Suspect]
     Indication: DEPRESSION
     Dosage: EXT RELEASE 300MG 1/DAY BY MOUTH
     Route: 048
     Dates: start: 20070630
  2. BUDEPRION XL TM [Suspect]
     Indication: DEPRESSION
     Dosage: EXT RELEASE 300MG 1/DAY BY MOUTH
     Route: 048
     Dates: start: 20070711

REACTIONS (3)
  - INCORRECT DOSE ADMINISTERED [None]
  - MANIA [None]
  - SUICIDE ATTEMPT [None]
